FAERS Safety Report 9476334 (Version 1)
Quarter: 2013Q3

REPORT INFORMATION
  Report Type: Spontaneous
  Country: NZ (occurrence: NZ)
  Receive Date: 20130826
  Receipt Date: 20130826
  Transmission Date: 20140515
  Serious: Yes (Other)
  Sender: FDA-Public Use
  Company Number: NZ-PFIZER INC-2013245929

PATIENT
  Age: 77 Year
  Sex: Female

DRUGS (5)
  1. QUINAPRIL HCL [Suspect]
     Dosage: UNK
  2. METFORMIN HYDROCHLORIDE [Concomitant]
     Dosage: UNK
  3. SALBUTAMOL [Concomitant]
     Dosage: UNK
  4. SIMVASTATIN [Concomitant]
     Dosage: UNK
  5. THYROXINE SODIUM [Concomitant]
     Dosage: UNK

REACTIONS (3)
  - Ataxia [Unknown]
  - Orthostatic hypotension [Unknown]
  - Dizziness [Unknown]
